FAERS Safety Report 5643449-1 (Version None)
Quarter: 2008Q1

REPORT INFORMATION
  Report Type: 
  Country: None (occurrence: None)
  Receive Date: 20080228
  Receipt Date: 20080220
  Transmission Date: 20080703
  Serious: Yes (Other)
  Sender: FDA-Public Use
  Company Number: US-PFIZER INC-2008006279

PATIENT
  Sex: Female
  Weight: 78 kg

DRUGS (6)
  1. XALATAN [Suspect]
     Indication: GLAUCOMA
     Route: 047
  2. XAL-EASE [Suspect]
     Indication: GLAUCOMA
  3. LISINOPRIL [Concomitant]
  4. ESTRADIOL [Concomitant]
  5. KLOR-CON [Concomitant]
  6. FUROSEMIDE [Concomitant]
     Indication: FLUID RETENTION

REACTIONS (5)
  - DEVICE INEFFECTIVE [None]
  - DRUG DOSE OMISSION [None]
  - INTRAOCULAR PRESSURE INCREASED [None]
  - JOINT INJURY [None]
  - MOBILITY DECREASED [None]
